FAERS Safety Report 10418118 (Version 7)
Quarter: 2015Q1

REPORT INFORMATION
  Report Type: Spontaneous
  Country: US (occurrence: None)
  Receive Date: 20140827
  Receipt Date: 20150113
  Transmission Date: 20150720
  Serious: Yes (Hospitalization, Other)
  Sender: FDA-Public Use
  Company Number: 2014-US-010495

PATIENT
  Age: 40 Year
  Sex: Female

DRUGS (11)
  1. CITRACAL (CALCIUM CITRATE) [Concomitant]
     Active Substance: CALCIUM CITRATE
  2. KEPPRA [Concomitant]
     Active Substance: LEVETIRACETAM
  3. VITAMINS NOS [Concomitant]
     Active Substance: VITAMINS
  4. ZONEGRAN (ZONISAMIDE) [Concomitant]
  5. CHEMOTHERAPY [Suspect]
     Active Substance: UNSPECIFIED INGREDIENT
     Indication: COLON CANCER
  6. PROVIGIL [Concomitant]
     Active Substance: MODAFINIL
  7. XYREM [Suspect]
     Active Substance: SODIUM OXYBATE
     Indication: CATAPLEXY
     Route: 048
     Dates: start: 201403, end: 2014
  8. SIMVASTATIN. [Concomitant]
     Active Substance: SIMVASTATIN
  9. XYREM [Suspect]
     Active Substance: SODIUM OXYBATE
     Indication: NARCOLEPSY
     Route: 048
     Dates: start: 201403, end: 2014
  10. PERCOCET (OXYCODONE HYDROCHLORIDE, PARACETAMOL) [Concomitant]
  11. FERROUS SULFATE [Concomitant]
     Active Substance: FERROUS SULFATE\FERROUS SULFATE, DRIED

REACTIONS (9)
  - Fatigue [None]
  - Colon cancer [None]
  - Blood potassium decreased [None]
  - Faecal incontinence [None]
  - Memory impairment [None]
  - Diarrhoea [None]
  - Haemorrhoids [None]
  - Nausea [None]
  - Pain [None]

NARRATIVE: CASE EVENT DATE: 201408
